FAERS Safety Report 8658084 (Version 2)
Quarter: 2013Q2

REPORT INFORMATION
  Report Type: Spontaneous
  Country: CN (occurrence: CN)
  Receive Date: 20120710
  Receipt Date: 20130415
  Transmission Date: 20140414
  Serious: Yes (Hospitalization)
  Sender: FDA-Public Use
  Company Number: PHHY2012CN057351

PATIENT
  Age: 36 Year
  Sex: Female

DRUGS (1)
  1. CEFTRIAXONE [Suspect]
     Indication: UPPER RESPIRATORY TRACT INFECTION

REACTIONS (19)
  - Multi-organ failure [Recovered/Resolved]
  - Metabolic acidosis [Recovered/Resolved]
  - Acute respiratory failure [Recovered/Resolved]
  - Stress cardiomyopathy [Recovered/Resolved]
  - Haemodynamic instability [Recovered/Resolved]
  - Oliguria [Recovered/Resolved]
  - Hypoxia [Recovered/Resolved]
  - Dyspnoea [Recovered/Resolved]
  - Tachycardia [Recovered/Resolved]
  - Chest discomfort [Recovered/Resolved]
  - Pulmonary oedema [Recovered/Resolved]
  - Lethargy [Unknown]
  - Peripheral coldness [Unknown]
  - Anaphylactic reaction [Recovered/Resolved]
  - Dizziness [Recovered/Resolved]
  - Hypotension [Recovered/Resolved]
  - Urticaria [Recovered/Resolved]
  - Pneumonia [Unknown]
  - Anuria [Recovered/Resolved]
